FAERS Safety Report 9814633 (Version 2)
Quarter: 2014Q1

REPORT INFORMATION
  Report Type: Spontaneous
  Country: DE (occurrence: DE)
  Receive Date: 20140113
  Receipt Date: 20140130
  Transmission Date: 20141002
  Serious: Yes (Death)
  Sender: FDA-Public Use
  Company Number: DE-GILEAD-2014-0091981

PATIENT
  Sex: Female
  Weight: 57 kg

DRUGS (4)
  1. AMBRISENTAN [Suspect]
     Indication: PRODUCT USED FOR UNKNOWN INDICATION
     Dosage: UNK
     Route: 048
     Dates: start: 201103
  2. NEBIVOLOL [Concomitant]
     Route: 065
  3. PANTOPRAZOL [Concomitant]
     Dosage: 40MG PER DAY
     Route: 065
  4. TORASEMIDE [Concomitant]
     Dosage: 20MG PER DAY
     Route: 065

REACTIONS (1)
  - Organ failure [Fatal]
